FAERS Safety Report 9613236 (Version 1)
Quarter: 2013Q4

REPORT INFORMATION
  Report Type: Spontaneous
  Country: FR (occurrence: FR)
  Receive Date: 20131010
  Receipt Date: 20131010
  Transmission Date: 20140711
  Serious: Yes (Hospitalization)
  Sender: FDA-Public Use
  Company Number: FR-GLAXOSMITHKLINE-B0926658A

PATIENT
  Sex: Female

DRUGS (2)
  1. LAMICTAL [Suspect]
     Indication: EPILEPSY
     Dosage: 100MG TWICE PER DAY
     Route: 064
  2. TEGRETOL [Concomitant]
     Indication: EPILEPSY
     Dosage: 200MG TWICE PER DAY
     Route: 064

REACTIONS (9)
  - Infantile spasms [Recovered/Resolved]
  - Foetal growth restriction [Recovered/Resolved]
  - Dyskinesia [Recovered/Resolved]
  - Eye disorder [Recovered/Resolved]
  - Respiration abnormal [Recovered/Resolved]
  - Hypertonia [Recovered/Resolved]
  - Eye movement disorder [Recovered/Resolved]
  - Psychomotor skills impaired [Recovered/Resolved]
  - Foetal exposure during pregnancy [Unknown]
